FAERS Safety Report 4995392-9 (Version None)
Quarter: 2006Q2

REPORT INFORMATION
  Report Type: 
  Country: None (occurrence: None)
  Receive Date: 20060503
  Receipt Date: 20060425
  Transmission Date: 20061013
  Serious: Yes (Hospitalization)
  Sender: FDA-Public Use
  Company Number: 2006EN000114

PATIENT
  Age: 9 Year

DRUGS (1)
  1. ADAGEN [Suspect]
     Dosage: IM
     Route: 030
     Dates: start: 19970101, end: 20060201

REACTIONS (4)
  - ADENOVIRUS INFECTION [None]
  - BONE MARROW TRANSPLANT [None]
  - DIARRHOEA INFECTIOUS [None]
  - INFECTION [None]
